FAERS Safety Report 4881530-5 (Version None)
Quarter: 2006Q1

REPORT INFORMATION
  Report Type: 
  Country: None (occurrence: None)
  Receive Date: 20060116
  Receipt Date: 20060102
  Transmission Date: 20060701
  Serious: Yes (Hospitalization)
  Sender: FDA-Public Use
  Company Number: FR-GLAXOSMITHKLINE-B0405282A

PATIENT
  Age: 29 Year
  Sex: Female
  Weight: 58 kg

DRUGS (5)
  1. LAMICTAL [Suspect]
     Indication: EPILEPSY
     Dosage: 75MG PER DAY
     Route: 048
     Dates: start: 20051027, end: 20051123
  2. BIRODOGYL [Suspect]
     Indication: TOOTH DISORDER
     Route: 048
     Dates: start: 20051116, end: 20051121
  3. DEPAKENE [Suspect]
     Indication: EPILEPSY
     Dosage: 2UNIT PER DAY
     Route: 048
     Dates: start: 20051027, end: 20051115
  4. DEPAKENE [Concomitant]
     Indication: EPILEPSY
     Dosage: 1500MG PER DAY
     Route: 048
     Dates: start: 20021101, end: 20051027
  5. SPECIAFOLDINE [Concomitant]
     Dosage: 1UNIT PER DAY
     Route: 048
     Dates: start: 20051027, end: 20051122

REACTIONS (7)
  - CHEILITIS [None]
  - DRUG RASH WITH EOSINOPHILIA AND SYSTEMIC SYMPTOMS [None]
  - EYE PRURITUS [None]
  - FACE OEDEMA [None]
  - OEDEMA PERIPHERAL [None]
  - PURPURA [None]
  - RASH MACULO-PAPULAR [None]
